FAERS Safety Report 18176399 (Version 3)
Quarter: 2020Q3

REPORT INFORMATION
  Report Type: Spontaneous
  Country: LT (occurrence: LT)
  Receive Date: 20200820
  Receipt Date: 20200910
  Transmission Date: 20201103
  Serious: Yes (Death, Hospitalization, Other)
  Sender: FDA-Public Use
  Company Number: LT-REGENERON PHARMACEUTICALS, INC.-2020-71313

PATIENT

DRUGS (5)
  1. NOLITERAX [Concomitant]
     Active Substance: INDAPAMIDE\PERINDOPRIL ARGININE
     Indication: PRODUCT USED FOR UNKNOWN INDICATION
     Dosage: 1KQD
     Route: 065
  2. DIAPREL [Concomitant]
     Active Substance: GLICLAZIDE
     Indication: PRODUCT USED FOR UNKNOWN INDICATION
     Dosage: 1K QD
     Route: 065
  3. LIBTAYO [Suspect]
     Active Substance: CEMIPLIMAB-RWLC
     Indication: PRODUCT USED FOR UNKNOWN INDICATION
     Dosage: 350 MG, Q3W
     Route: 065
     Dates: start: 20200715, end: 20200715
  4. ALOTENDIN [Concomitant]
     Indication: PRODUCT USED FOR UNKNOWN INDICATION
     Dosage: 1K QD
     Route: 065
  5. METFORAL [Concomitant]
     Active Substance: METFORMIN HYDROCHLORIDE
     Indication: PRODUCT USED FOR UNKNOWN INDICATION
     Dosage: 3K QD
     Route: 065

REACTIONS (18)
  - Pneumonia [Unknown]
  - Dry skin [Unknown]
  - Skin turgor decreased [Unknown]
  - Arrhythmia [Unknown]
  - Anaemia [Unknown]
  - Septic shock [Unknown]
  - Condition aggravated [Unknown]
  - Neutropenia [Unknown]
  - Blood count abnormal [Unknown]
  - Oropharyngeal plaque [Unknown]
  - Pyrexia [Unknown]
  - Inflammatory marker increased [Unknown]
  - Renal impairment [Unknown]
  - Sepsis [Unknown]
  - Sluggishness [Unknown]
  - Death [Fatal]
  - Polyuria [Unknown]
  - Haemodynamic instability [Unknown]

NARRATIVE: CASE EVENT DATE: 20200812
